FAERS Safety Report 5049558-2 (Version None)
Quarter: 2006Q2

REPORT INFORMATION
  Report Type: 
  Country: None (occurrence: None)
  Receive Date: 20060613
  Receipt Date: 20060414
  Transmission Date: 20061013
  Serious: Yes (Hospitalization)
  Sender: FDA-Public Use
  Company Number: 2006-00882

PATIENT
  Age: 65 Year
  Sex: Female
  Weight: 77.6 kg

DRUGS (6)
  1. VELCADE [Suspect]
     Indication: MULTIPLE MYELOMA
     Dosage: 2.50 MG/M2, IV BOLUS
     Route: 040
     Dates: start: 20060116, end: 20060126
  2. LEVOTHYROXINE SODIUM [Concomitant]
  3. ZOMETA [Concomitant]
  4. ASPIRIN TAB [Concomitant]
  5. KETOCONAZOLE [Concomitant]
  6. NORVASC [Concomitant]

REACTIONS (3)
  - BRADYCARDIA [None]
  - ORTHOSTATIC HYPOTENSION [None]
  - SYNCOPE [None]
